FAERS Safety Report 10525115 (Version 4)
Quarter: 2014Q4

REPORT INFORMATION
  Report Type: Spontaneous
  Country: JP (occurrence: JP)
  Receive Date: 20141017
  Receipt Date: 20141121
  Transmission Date: 20150528
  Serious: Yes (Hospitalization)
  Sender: FDA-Public Use
  Company Number: JP-AMGEN-JPNSP2014080405

PATIENT
  Age: 67 Year
  Sex: Female

DRUGS (1)
  1. NESP [Suspect]
     Active Substance: DARBEPOETIN ALFA
     Indication: RENAL FAILURE
     Dosage: 40 MUG, UNK
     Route: 058

REACTIONS (1)
  - Aplasia pure red cell [Unknown]

NARRATIVE: CASE EVENT DATE: 20141006
